FAERS Safety Report 12969995 (Version 1)
Quarter: 2016Q4

REPORT INFORMATION
  Report Type: Spontaneous
  Country: IT (occurrence: IT)
  Receive Date: 20161123
  Receipt Date: 20161123
  Transmission Date: 20170207
  Serious: Yes (Hospitalization)
  Sender: FDA-Public Use
  Company Number: IT-JNJFOC-20161016329

PATIENT
  Age: 89 Year
  Sex: Female

DRUGS (7)
  1. CARDIOASPIRIN [Concomitant]
     Active Substance: ASPIRIN
     Route: 048
  2. POTASSIUM CHLORIDE. [Concomitant]
     Active Substance: POTASSIUM CHLORIDE
     Route: 048
     Dates: start: 20160413, end: 20160417
  3. QUINAPRIL. [Concomitant]
     Active Substance: QUINAPRIL
     Indication: HYPERTENSION
     Route: 048
  4. DUROGESIC [Suspect]
     Active Substance: FENTANYL
     Indication: SPINAL PAIN
     Dosage: 25 MCG/HOUR A CYCLICAL
     Route: 062
     Dates: start: 20160416, end: 20160417
  5. PHENOBARBITAL. [Concomitant]
     Active Substance: PHENOBARBITAL
     Indication: EPILEPSY
     Route: 048
  6. RABEPRAZOLE SODIUM. [Concomitant]
     Active Substance: RABEPRAZOLE SODIUM
     Indication: PROPHYLAXIS AGAINST GASTROINTESTINAL ULCER
     Route: 048
  7. GIASION [Concomitant]
     Active Substance: CEFDITOREN PIVOXIL
     Indication: URINARY TRACT INFECTION
     Route: 048
     Dates: start: 20160416, end: 20160417

REACTIONS (2)
  - Disorientation [Recovered/Resolved]
  - Urinary tract infection [Unknown]

NARRATIVE: CASE EVENT DATE: 20160417
